FAERS Safety Report 16946404 (Version 8)
Quarter: 2020Q1

REPORT INFORMATION
  Report Type: Report from Study
  Country: US (occurrence: US)
  Receive Date: 20191022
  Receipt Date: 20200314
  Transmission Date: 20200409
  Serious: Yes (Hospitalization, Other)
  Sender: FDA-Public Use
  Company Number: US-ACTELION-A-NJ2019-194216

PATIENT
  Sex: Female
  Weight: 74.38 kg

DRUGS (10)
  1. UPTRAVI [Suspect]
     Active Substance: SELEXIPAG
     Dosage: 200 MCG, BID
     Route: 048
  2. UPTRAVI [Suspect]
     Active Substance: SELEXIPAG
     Dosage: 1400 MCG, BID
     Route: 048
  3. UPTRAVI [Suspect]
     Active Substance: SELEXIPAG
     Dosage: 1200 MCG, BID
     Route: 048
  4. UPTRAVI [Suspect]
     Active Substance: SELEXIPAG
     Dosage: 400 MCG, BID
     Route: 048
  5. UPTRAVI [Suspect]
     Active Substance: SELEXIPAG
     Dosage: 1000 MCG, BID
     Route: 048
  6. UPTRAVI [Suspect]
     Active Substance: SELEXIPAG
     Dosage: 800 MCG, BID
     Route: 048
  7. UPTRAVI [Suspect]
     Active Substance: SELEXIPAG
     Dosage: 1400 MCG, QAM/1600 MCG QPM
     Route: 048
     Dates: start: 20200124
  8. WARFARIN [Concomitant]
     Active Substance: WARFARIN
  9. UPTRAVI [Suspect]
     Active Substance: SELEXIPAG
     Indication: PULMONARY ARTERIAL HYPERTENSION
     Dosage: 1600 MCG, BID
     Route: 048
  10. UPTRAVI [Suspect]
     Active Substance: SELEXIPAG
     Dosage: 600 MCG, BID
     Route: 048

REACTIONS (26)
  - Dyspnoea [Unknown]
  - Retching [Unknown]
  - Cardiac failure congestive [Unknown]
  - Nausea [Unknown]
  - Eye disorder [Unknown]
  - Vomiting [Unknown]
  - Malaise [Unknown]
  - Drug intolerance [Unknown]
  - Pain in extremity [Unknown]
  - Pain in jaw [Unknown]
  - Decreased appetite [Unknown]
  - Skull fracture [Unknown]
  - Dyspnoea exertional [Not Recovered/Not Resolved]
  - Neck injury [Unknown]
  - Wheezing [Unknown]
  - Influenza like illness [Unknown]
  - Insomnia [Unknown]
  - Pain [Unknown]
  - Arthralgia [Unknown]
  - Diarrhoea [Unknown]
  - Headache [Recovering/Resolving]
  - Neck pain [Unknown]
  - Irritable bowel syndrome [Unknown]
  - Eye pain [Unknown]
  - Stress [Unknown]
  - Back pain [Unknown]
